FAERS Safety Report 6417673 (Version 3)
Quarter: 2014Q1

REPORT INFORMATION
  Report Type: Spontaneous
  Country: US (occurrence: US)
  Receive Date: 20070918
  Receipt Date: 20140220
  Transmission Date: 20141002
  Serious: Yes (Other)
  Sender: FDA-Public Use
  Company Number: US-PFIZER INC-2003038302

PATIENT
  Age: 65 Year
  Sex: Female
  Weight: 84.35 kg

DRUGS (16)
  1. NEURONTIN [Suspect]
     Indication: CONVULSION
     Dosage: 600 MG, 2X/DAY
     Dates: start: 1997
  2. NEURONTIN [Suspect]
     Indication: NEUROPATHY PERIPHERAL
     Dosage: 400 MG, 4X/DAY
  3. NEURONTIN [Suspect]
     Indication: ARTHRITIS
     Dosage: 600 MG, 3X/DAY
  4. NEURONTIN [Suspect]
     Dosage: 600 MG, 4X/DAY
  5. LIPITOR [Suspect]
     Indication: BLOOD CHOLESTEROL INCREASED
     Dosage: 20 MG, DAILY
     Route: 048
     Dates: start: 200307
  6. LIPITOR [Suspect]
     Indication: CARDIAC MURMUR
  7. LIPITOR [Suspect]
     Indication: AORTIC VALVE DISEASE
  8. ZYRTEC [Suspect]
     Indication: MULTIPLE ALLERGIES
     Dosage: 10MG ONE TO THREE TIMES DAILY
  9. ZYRTEC [Suspect]
     Dosage: 10 MG, TWICE OR THREE TIMES DAILY AS NEEDED
  10. SUCRALFATE [Suspect]
     Indication: ABDOMINAL DISCOMFORT
     Dosage: UNK
  11. TEGRETOL [Concomitant]
     Dosage: UNK
  12. MIDRIN [Concomitant]
     Dosage: UNK
  13. SYNTHROID [Concomitant]
     Dosage: UNK
  14. ROBAXIN [Concomitant]
     Dosage: UNK
  15. BENADRYL [Concomitant]
     Dosage: UNK
  16. ALLEGRA [Concomitant]
     Dosage: UNK
     Dates: end: 2003

REACTIONS (13)
  - Off label use [Unknown]
  - Sjogren^s syndrome [Not Recovered/Not Resolved]
  - Thyroid function test abnormal [Unknown]
  - Hypersensitivity [Unknown]
  - Tremor [Unknown]
  - Somnolence [Unknown]
  - Muscle spasms [Recovered/Resolved]
  - Flatulence [Unknown]
  - Sleep disorder [Recovered/Resolved]
  - Drug ineffective [Not Recovered/Not Resolved]
  - Alopecia [Recovered/Resolved]
  - Feeling abnormal [Unknown]
  - Rash [Recovered/Resolved]
